FAERS Safety Report 5625678-6 (Version None)
Quarter: 2008Q1

REPORT INFORMATION
  Report Type: 
  Country: None (occurrence: None)
  Receive Date: 20080214
  Receipt Date: 20080208
  Transmission Date: 20080703
  Serious: Yes (Hospitalization)
  Sender: FDA-Public Use
  Company Number: JP-BAYER-200810013BYL

PATIENT
  Age: 73 Year
  Sex: Male
  Weight: 52 kg

DRUGS (9)
  1. FLUDARA [Suspect]
     Indication: NON-HODGKIN'S LYMPHOMA
     Dosage: TOTAL DAILY DOSE: 70 MG  UNIT DOSE: 10 MG
     Route: 048
     Dates: start: 20070823, end: 20070827
  2. FLUDARA [Suspect]
     Dosage: TOTAL DAILY DOSE: 70 MG  UNIT DOSE: 10 MG
     Route: 048
     Dates: start: 20070921, end: 20070925
  3. FLUDARA [Suspect]
     Dosage: TOTAL DAILY DOSE: 70 MG  UNIT DOSE: 10 MG
     Route: 048
     Dates: start: 20071019, end: 20071023
  4. BASEN [Concomitant]
     Route: 048
  5. MELBIN [Concomitant]
     Route: 048
  6. NORVASC [Concomitant]
     Route: 048
  7. GLYBURIDE [Concomitant]
     Route: 048
  8. ACTOS [Concomitant]
     Route: 048
  9. BAKTAR [Concomitant]
     Dosage: TOTAL DAILY DOSE: 4 G
     Route: 048

REACTIONS (5)
  - CEREBRAL INFARCTION [None]
  - FEBRILE NEUTROPENIA [None]
  - MUSCULAR WEAKNESS [None]
  - NEUTROPHIL COUNT DECREASED [None]
  - WHITE BLOOD CELL COUNT DECREASED [None]
